FAERS Safety Report 12089064 (Version 8)
Quarter: 2016Q2

REPORT INFORMATION
  Report Type: Spontaneous
  Country: GB (occurrence: GB)
  Receive Date: 20160218
  Receipt Date: 20160523
  Transmission Date: 20160815
  Serious: Yes (Other)
  Sender: FDA-Public Use
  Company Number: GB-JNJFOC-20160123297

PATIENT
  Age: 56 Year
  Sex: Female

DRUGS (1)
  1. SIMPONI [Suspect]
     Active Substance: GOLIMUMAB
     Indication: PRODUCT USED FOR UNKNOWN INDICATION
     Route: 058
     Dates: start: 20160113

REACTIONS (4)
  - Lower respiratory tract infection [Unknown]
  - Oral fungal infection [Not Recovered/Not Resolved]
  - Pharyngitis [Recovering/Resolving]
  - Eye infection [Unknown]

NARRATIVE: CASE EVENT DATE: 2016
